FAERS Safety Report 6432836-X (Version None)
Quarter: 2009Q4

REPORT INFORMATION
  Report Type: 
  Country: None (occurrence: None)
  Receive Date: 20091109
  Receipt Date: 20091028
  Transmission Date: 20100525
  Serious: Yes (Death, Hospitalization)
  Sender: FDA-Public Use
  Company Number: B0599137A

PATIENT
  Age: 67 Year
  Sex: Male

DRUGS (3)
  1. FLUTIDE [Suspect]
     Indication: PNEUMONIA
     Dosage: 200MCG TWICE PER DAY
     Route: 055
  2. IPRATROPIUM BROMIDE [Concomitant]
     Dosage: 40MCG FOUR TIMES PER DAY
     Route: 055
  3. DICLOFENAC SODIUM [Concomitant]
     Dosage: 25MG PER DAY
     Route: 065

REACTIONS (2)
  - BRONCHOPULMONARY ASPERGILLOSIS [None]
  - MULTI-ORGAN FAILURE [None]
